FAERS Safety Report 5775465-3 (Version None)
Quarter: 2008Q2

REPORT INFORMATION
  Report Type: 
  Country: None (occurrence: None)
  Receive Date: 20080613
  Receipt Date: 20080529
  Transmission Date: 20081010
  Serious: Yes (Hospitalization)
  Sender: FDA-Public Use
  Company Number: 2008AL006069

PATIENT
  Age: 57 Year
  Sex: Male
  Weight: 81.6475 kg

DRUGS (4)
  1. DIGOXIN [Suspect]
     Indication: ATRIAL FIBRILLATION
     Dosage: 0.25MG DAILY PO
     Route: 048
     Dates: start: 20050506, end: 20080101
  2. CARDIZEM [Concomitant]
  3. LIPITOR [Concomitant]
  4. LANOXIN [Concomitant]

REACTIONS (4)
  - ASTHENIA [None]
  - DYSPNOEA [None]
  - HEART RATE DECREASED [None]
  - OVERDOSE [None]
